FAERS Safety Report 6232727-3 (Version None)
Quarter: 2009Q2

REPORT INFORMATION
  Report Type: 
  Country: None (occurrence: None)
  Receive Date: 20090617
  Receipt Date: 20090610
  Transmission Date: 20091009
  Serious: Yes (Hospitalization, Other)
  Sender: FDA-Public Use
  Company Number: CL-NOVOPROD-286189

PATIENT
  Age: 7 Year
  Sex: Female
  Weight: 20.3 kg

DRUGS (3)
  1. NORDITROPIN NORDIFLEX [Suspect]
     Indication: DRUG USE FOR UNKNOWN INDICATION
     Dosage: .035 MG, QD
     Dates: start: 20090116
  2. NORDITROPIN NORDIFLEX [Suspect]
     Dosage: 2.3 UL, QD
     Route: 058
     Dates: start: 20090311, end: 20090322
  3. PARACETAMOL [Concomitant]

REACTIONS (1)
  - INTRACRANIAL PRESSURE INCREASED [None]
